FAERS Safety Report 5872462-4 (Version None)
Quarter: 2008Q3

REPORT INFORMATION
  Report Type: 
  Country: None (occurrence: None)
  Receive Date: 20080905
  Receipt Date: 20080902
  Transmission Date: 20090109
  Serious: Yes (Life-Threatening)
  Sender: FDA-Public Use
  Company Number: PHHY2008DE11600

PATIENT
  Sex: Male
  Weight: 175 kg

DRUGS (6)
  1. EXFORGE [Suspect]
     Indication: HYPERTENSION
     Dosage: 10/160 MG/DAY
     Route: 048
     Dates: start: 20071216
  2. SIMVA-HENNIG [Concomitant]
     Indication: LOW DENSITY LIPOPROTEIN
     Dosage: 20 MG /DAY
     Dates: start: 20071023
  3. NEBILET [Concomitant]
     Indication: HYPERTENSION
     Dosage: UNK
     Dates: start: 20080125
  4. NEBIVOLOL HCL [Concomitant]
     Indication: HYPERTENSION
     Dosage: 5 MG
     Dates: start: 20080507
  5. ASS ^STADA^ [Concomitant]
     Indication: PLATELET AGGREGATION INHIBITION
     Dosage: 100 MG/DAY
     Route: 048
     Dates: start: 20071023
  6. PROVAS ^SCHWARZ^ [Concomitant]
     Indication: HYPERTENSION
     Dosage: 160 MG/DAY
     Route: 048
     Dates: start: 20080730

REACTIONS (2)
  - BLOOD POTASSIUM DECREASED [None]
  - URINE POTASSIUM INCREASED [None]
